FAERS Safety Report 7974075-7 (Version None)
Quarter: 2011Q4

REPORT INFORMATION
  Report Type: 
  Country: None (occurrence: None)
  Receive Date: 20111213
  Receipt Date: 20111130
  Transmission Date: 20120403
  Serious: Yes (Death)
  Sender: FDA-Public Use
  Company Number: MX-SANOFI-AVENTIS-2011SA080787

PATIENT
  Age: 29 Year
  Sex: Male

DRUGS (2)
  1. INSULIN GLARGINE [Suspect]
     Indication: TYPE 2 DIABETES MELLITUS
     Route: 058
     Dates: start: 20010101
  2. INSULIN GLARGINE [Suspect]
     Route: 058
     Dates: start: 20080101, end: 20090324

REACTIONS (1)
  - BACTERIAL SEPSIS [None]
